FAERS Safety Report 8025191 (Version 10)
Quarter: 2013Q2

REPORT INFORMATION
  Report Type: Spontaneous
  Country: JP (occurrence: JP)
  Receive Date: 20110707
  Receipt Date: 20130524
  Transmission Date: 20140414
  Serious: Yes (Death, Life-Threatening, Hospitalization)
  Sender: FDA-Public Use
  Company Number: JP-GLAXOSMITHKLINE-B0721388A

PATIENT
  Age: 7 Year
  Sex: Female
  Weight: 15 kg

DRUGS (11)
  1. LAMICTAL [Suspect]
     Indication: EPILEPSY
     Dosage: 2MG PER DAY
     Route: 048
     Dates: start: 20100205, end: 20100218
  2. LAMICTAL [Suspect]
     Indication: EPILEPSY
     Dosage: 4MG PER DAY
     Route: 048
     Dates: start: 20100219, end: 20100308
  3. LAMICTAL [Suspect]
     Indication: EPILEPSY
     Dosage: 8MG PER DAY
     Route: 048
     Dates: start: 20100309, end: 20100329
  4. LAMICTAL [Suspect]
     Indication: EPILEPSY
     Dosage: 6MG TWICE PER DAY
     Route: 048
     Dates: start: 20100330, end: 20100419
  5. LAMICTAL [Suspect]
     Indication: EPILEPSY
     Dosage: 8MG TWICE PER DAY
     Route: 048
     Dates: start: 20100420, end: 20100513
  6. LAMICTAL [Suspect]
     Indication: EPILEPSY
     Dosage: 10MG TWICE PER DAY
     Route: 048
     Dates: start: 20100514, end: 20100610
  7. LAMICTAL [Suspect]
     Indication: EPILEPSY
     Route: 048
     Dates: start: 20100611, end: 20100714
  8. SELENICA-R [Suspect]
     Indication: EPILEPSY
     Dosage: 350MG TWICE PER DAY
     Route: 048
     Dates: start: 20090821, end: 20100803
  9. TOPINA [Concomitant]
     Indication: EPILEPSY
     Route: 048
     Dates: start: 20090218, end: 20100528
  10. RIVOTRIL [Concomitant]
     Indication: EPILEPSY
     Dosage: .2MG TWICE PER DAY
     Route: 048
     Dates: start: 20100730, end: 20100803
  11. MYSTAN [Concomitant]
     Indication: EPILEPSY
     Dosage: 1.5MG TWICE PER DAY
     Route: 048
     Dates: start: 20100816, end: 20100819

REACTIONS (17)
  - Drug reaction with eosinophilia and systemic symptoms [Fatal]
  - Cardiac failure [Fatal]
  - Myocarditis [Fatal]
  - Myocarditis [Recovering/Resolving]
  - Thyroiditis [Not Recovered/Not Resolved]
  - Ventricular fibrillation [Unknown]
  - Hypothyroidism [Unknown]
  - Hepatic function abnormal [Unknown]
  - Liver disorder [Unknown]
  - Rash [Unknown]
  - Pyrexia [Unknown]
  - Erythema [Unknown]
  - Vomiting [Unknown]
  - Cardiomegaly [Unknown]
  - Blood creatine phosphokinase increased [Unknown]
  - Hyperthermia [Unknown]
  - Rash [Unknown]
